FAERS Safety Report 18446737 (Version 2)
Quarter: 2020Q4

REPORT INFORMATION
  Report Type: Spontaneous
  Country: US (occurrence: US)
  Receive Date: 20201030
  Receipt Date: 20201030
  Transmission Date: 20210114
  Serious: Yes (Other)
  Sender: FDA-Public Use
  Company Number: US-NOVOPROD-714904

PATIENT
  Age: 76 Year
  Sex: Female

DRUGS (3)
  1. NOVOLOG [Concomitant]
     Active Substance: INSULIN ASPART
     Indication: TYPE 1 DIABETES MELLITUS
     Dosage: 10 IU, TID (WITH MEALS)
     Route: 058
  2. TRESIBA [Suspect]
     Active Substance: INSULIN DEGLUDEC
     Indication: TYPE 1 DIABETES MELLITUS
     Dosage: 2 IU, QD (IF BLOOD GLUCOSE IS GREATER THAN 150 MG/DL, THE ADDITIONAL UNIT OF TRESIBA)
     Route: 058
     Dates: start: 2015
  3. TRESIBA [Suspect]
     Active Substance: INSULIN DEGLUDEC
     Indication: TYPE 1 DIABETES MELLITUS
     Dosage: 2 IU, QD (IF BLOOD GLUCOSE IS GREATER THAN 150 MG/DL, THE ADDITIONAL UNIT OF TRESIBA)
     Route: 058
     Dates: start: 2015

REACTIONS (3)
  - Blood glucose decreased [Recovered/Resolved]
  - Wrong technique in product usage process [Unknown]
  - Inappropriate schedule of product administration [Unknown]

NARRATIVE: CASE EVENT DATE: 2019
